FAERS Safety Report 5302691-X (Version None)
Quarter: 2007Q2

REPORT INFORMATION
  Report Type: 
  Country: None (occurrence: None)
  Receive Date: 20070419
  Receipt Date: 20070410
  Transmission Date: 20071010
  Serious: Yes (Hospitalization, Other)
  Sender: FDA-Public Use
  Company Number: US-PFIZER INC-2007013316

PATIENT
  Sex: Male
  Weight: 78.4 kg

DRUGS (4)
  1. LIPITOR [Suspect]
     Indication: HYPERLIPIDAEMIA
     Route: 065
  2. ATENOLOL [Concomitant]
     Route: 065
  3. PROVENTIL INHALER [Concomitant]
     Route: 065
  4. ASPIRIN [Concomitant]
     Route: 065

REACTIONS (9)
  - ALVEOLITIS ALLERGIC [None]
  - ASTHMA [None]
  - C-REACTIVE PROTEIN INCREASED [None]
  - CORONARY ARTERY BYPASS [None]
  - COUGH [None]
  - DYSPNOEA [None]
  - LUNG INFILTRATION [None]
  - PULMONARY EOSINOPHILIA [None]
  - PULMONARY FUNCTION TEST DECREASED [None]
